FAERS Safety Report 5056094-6 (Version None)
Quarter: 2006Q2

REPORT INFORMATION
  Report Type: 
  Country: None (occurrence: None)
  Receive Date: 20060616
  Receipt Date: 20030404
  Transmission Date: 20061013
  Serious: Yes (Other)
  Sender: FDA-Public Use
  Company Number: PHEH2003US03501

PATIENT
  Age: 65 Year
  Sex: Male
  Weight: 66.2 kg

DRUGS (2)
  1. EXELON [Suspect]
     Indication: DEMENTIA ALZHEIMER'S TYPE
     Dosage: 6 MG,BID,ORAL
     Route: 048
     Dates: start: 20000927, end: 20030418
  2. LIPITOR [Concomitant]

REACTIONS (2)
  - ASTHENIA [None]
  - GRAND MAL CONVULSION [None]
